FAERS Safety Report 6573622-X (Version None)
Quarter: 2010Q1

REPORT INFORMATION
  Report Type: 
  Country: None (occurrence: None)
  Receive Date: 20100208
  Receipt Date: 20100202
  Transmission Date: 20100710
  Serious: Yes (Life-Threatening, Hospitalization, Other)
  Sender: FDA-Public Use
  Company Number: BR-ROCHE-683282

PATIENT
  Sex: Female
  Weight: 59 kg

DRUGS (8)
  1. RIVOTRIL [Suspect]
     Indication: DEPRESSION
     Route: 048
     Dates: start: 20030101
  2. RIVOTRIL [Suspect]
     Dosage: OVERDOSE (4 MG, 6 MG OR 8 MG DAILY)
     Route: 048
  3. RIVOTRIL [Suspect]
     Route: 048
  4. PAMELOR [Suspect]
     Indication: DRUG USE FOR UNKNOWN INDICATION
     Route: 065
  5. NADOLOL [Suspect]
     Route: 065
  6. OLCADIL [Suspect]
     Indication: BIPOLAR DISORDER
     Route: 065
  7. ESCITALOPRAM [Suspect]
     Indication: BIPOLAR DISORDER
     Dosage: DRUG: EXODUS (ESCITALOPRAM)
     Route: 065
  8. DEPAKOTE [Suspect]
     Indication: BIPOLAR DISORDER
     Route: 065

REACTIONS (15)
  - COMA [None]
  - COORDINATION ABNORMAL [None]
  - CRYING [None]
  - ILLITERACY [None]
  - INSOMNIA [None]
  - MEMORY IMPAIRMENT [None]
  - NAUSEA [None]
  - OVERDOSE [None]
  - PSYCHOGENIC PAIN DISORDER [None]
  - PULMONARY OEDEMA [None]
  - RESPIRATORY DISORDER [None]
  - SUICIDAL IDEATION [None]
  - SUICIDE ATTEMPT [None]
  - VISUAL IMPAIRMENT [None]
  - VOMITING [None]
